FAERS Safety Report 12491821 (Version 1)
Quarter: 2016Q2

REPORT INFORMATION
  Report Type: Spontaneous
  Country: GB (occurrence: GB)
  Receive Date: 20160623
  Receipt Date: 20160623
  Transmission Date: 20160815
  Serious: Yes (Other)
  Sender: FDA-Public Use
  Company Number: GB-AUROBINDO-AUR-APL-2016-08268

PATIENT
  Age: 27 Year
  Sex: Male
  Weight: 67 kg

DRUGS (1)
  1. NAPROXEN AUROBINDO [Suspect]
     Active Substance: NAPROXEN
     Indication: NERVE COMPRESSION
     Dosage: 250 MG, UNK
     Route: 048
     Dates: start: 20160524, end: 20160524

REACTIONS (1)
  - Retinal disorder [Recovered/Resolved]

NARRATIVE: CASE EVENT DATE: 20160524
